FAERS Safety Report 5882918-6 (Version None)
Quarter: 2008Q3

REPORT INFORMATION
  Report Type: 
  Country: None (occurrence: None)
  Receive Date: 20080913
  Receipt Date: 20080820
  Transmission Date: 20090109
  Serious: No
  Sender: FDA-Public Use
  Company Number: US-ABBOTT-08P-163-0471928-00

PATIENT
  Sex: Female
  Weight: 50.394 kg

DRUGS (9)
  1. HUMIRA [Suspect]
     Indication: CROHN'S DISEASE
     Route: 058
     Dates: start: 20080820
  2. HUMIRA [Suspect]
     Dosage: 4 INJECTIONS OF 40 MG EACH
  3. TERIPARATIDE [Concomitant]
     Indication: BONE DISORDER
     Route: 050
     Dates: start: 20080201
  4. URFODIOL [Concomitant]
     Indication: LIVER DISORDER
     Route: 048
  5. CYPROHEPTADINE HYDROCHLORIDE [Concomitant]
     Indication: DISBACTERIOSIS
     Route: 048
  6. OMEPRAZOLE MAGNESIUM [Concomitant]
     Indication: DYSPEPSIA
     Route: 048
  7. CODEINE SUL TAB [Concomitant]
     Indication: DIARRHOEA
     Dosage: 240 - 300 MG 60 MG 4-5 TIMES A DAY
     Route: 048
  8. AMITRIPTYLINE HCL [Concomitant]
     Indication: SLEEP DISORDER
     Route: 048
     Dates: start: 20080601
  9. TPN [Concomitant]
     Indication: NUTRITIONAL SUPPORT
     Dosage: 5 TIMES A WEEK
     Route: 042

REACTIONS (1)
  - ACCIDENTAL EXPOSURE [None]
